FAERS Safety Report 4620569-1 (Version None)
Quarter: 2005Q1

REPORT INFORMATION
  Report Type: 
  Country: None (occurrence: None)
  Receive Date: 20050324
  Receipt Date: 20050315
  Transmission Date: 20050727
  Serious: Yes (Other)
  Sender: FDA-Public Use
  Company Number: 2005045811

PATIENT
  Age: 57 Year
  Sex: Male
  Weight: 158.759 kg

DRUGS (7)
  1. ZOLOFT [Suspect]
     Indication: ANXIETY
     Dosage: 100 MG (100 MG, 1 IN 1 D), ORAL
     Route: 048
  2. ZOLOFT [Suspect]
     Indication: PANIC REACTION
     Dosage: 100 MG (100 MG, 1 IN 1 D), ORAL
     Route: 048
  3. XANAX [Suspect]
     Indication: ANXIETY
     Dosage: 3 MG (1 MG, 3 IN 1 D), ORAL
     Route: 048
  4. XANAX [Suspect]
     Indication: PANIC REACTION
     Dosage: 3 MG (1 MG, 3 IN 1 D), ORAL
     Route: 048
  5. NEURONTIN [Suspect]
     Indication: NEUROPATHY
  6. ALLEGRA-D [Concomitant]
  7. PRINZIDE [Concomitant]

REACTIONS (6)
  - BACK PAIN [None]
  - CONDITION AGGRAVATED [None]
  - INTERVERTEBRAL DISC DEGENERATION [None]
  - INTERVERTEBRAL DISC PROTRUSION [None]
  - NEUROPATHY [None]
  - TREATMENT NONCOMPLIANCE [None]
